FAERS Safety Report 7405977-8 (Version None)
Quarter: 2011Q2

REPORT INFORMATION
  Report Type: 
  Country: None (occurrence: None)
  Receive Date: 20110411
  Receipt Date: 20101116
  Transmission Date: 20111010
  Serious: Yes (Hospitalization, Other)
  Sender: FDA-Public Use
  Company Number: US-BAYER-201019486NA

PATIENT
  Age: 22 Year
  Sex: Female
  Weight: 63.492 kg

DRUGS (8)
  1. NAPROXEN [Concomitant]
     Dosage: UNK
     Dates: start: 20000101, end: 20100101
  2. ORTHO TRI-CYCLEN LO [Concomitant]
     Dosage: UNK
     Dates: start: 20050101, end: 20060101
  3. YASMIN [Suspect]
     Indication: CONTRACEPTION
     Dosage: UNK
     Dates: start: 20010101, end: 20050101
  4. YASMIN [Suspect]
     Indication: PREMENSTRUAL SYNDROME
  5. ANTIBIOTICS [Concomitant]
     Dosage: UNK
     Dates: start: 20000101
  6. ALBUTEROL [Concomitant]
     Indication: ASTHMA
     Dosage: UNK
     Dates: start: 20000101, end: 20080101
  7. YAZ [Suspect]
     Indication: PRODUCT USED FOR UNKNOWN INDICATION
     Dosage: UNK
     Dates: start: 20060101, end: 20090101
  8. IBUPROFEN [Concomitant]
     Dosage: UNK
     Dates: start: 20000101, end: 20100101

REACTIONS (5)
  - BILE DUCT OBSTRUCTION [None]
  - CHOLECYSTITIS [None]
  - GALLBLADDER DISORDER [None]
  - SPHINCTER OF ODDI DYSFUNCTION [None]
  - CHOLELITHIASIS [None]
